FAERS Safety Report 6827782-3 (Version None)
Quarter: 2010Q3

REPORT INFORMATION
  Report Type: 
  Country: None (occurrence: None)
  Receive Date: 20100709
  Receipt Date: 20070126
  Transmission Date: 20110219
  Serious: No
  Sender: FDA-Public Use
  Company Number: US-PFIZER INC-2007008700

PATIENT
  Age: 68 Year
  Sex: Female
  Weight: 52.16 kg

DRUGS (5)
  1. CHANTIX [Suspect]
     Indication: SMOKING CESSATION THERAPY
     Dates: start: 20070105, end: 20070113
  2. LIBRIUM [Concomitant]
  3. ZANTAC [Concomitant]
  4. ZETIA [Concomitant]
  5. ACETYLSALICYLIC ACID [Concomitant]

REACTIONS (1)
  - VOMITING [None]
